FAERS Safety Report 9990050 (Version 1)
Quarter: 2013Q4

REPORT INFORMATION
  Report Type: Spontaneous
  Country: US (occurrence: None)
  Receive Date: 20131118
  Receipt Date: 20131118
  Transmission Date: 20140711
  Serious: Yes (Death, Other)
  Sender: FDA-Public Use
  Company Number: ENT 2013-0152

PATIENT
  Age: 85 Year
  Sex: Male

DRUGS (3)
  1. COMTAN [Suspect]
     Indication: PARKINSON^S DISEASE
  2. LEVODOPA-CARBIDOPA (LEVODOPA) [Concomitant]
  3. SELEGILINE (SELEGILINE) [Concomitant]

REACTIONS (3)
  - Pulmonary embolism [None]
  - Fall [None]
  - Hip fracture [None]
